FAERS Safety Report 8377855-1 (Version None)
Quarter: 2012Q2

REPORT INFORMATION
  Report Type: 
  Country: None (occurrence: None)
  Receive Date: 20120522
  Receipt Date: 20120515
  Transmission Date: 20120825
  Serious: Yes (Hospitalization)
  Sender: FDA-Public Use
  Company Number: US-MERCK-1111USA02484

PATIENT
  Age: 69 Year
  Sex: Male

DRUGS (7)
  1. FOSAMAX [Suspect]
     Indication: OSTEOPOROSIS
     Route: 048
     Dates: start: 19950101
  2. [THERAPY UNSPECIFIED] [Concomitant]
     Indication: RHEUMATOID ARTHRITIS
     Route: 065
  3. [THERAPY UNSPECIFIED] [Concomitant]
     Indication: DIABETES MELLITUS
     Route: 065
  4. [THERAPY UNSPECIFIED] [Concomitant]
     Indication: BLOOD CHOLESTEROL INCREASED
     Route: 065
  5. CALCIUM (UNSPECIFIED) [Concomitant]
     Route: 065
  6. [THERAPY UNSPECIFIED] [Concomitant]
     Indication: HYPERTENSION
     Route: 065
  7. VITAMINS (UNSPECIFIED) [Concomitant]
     Route: 065

REACTIONS (21)
  - DIABETES MELLITUS [None]
  - ABSCESS [None]
  - JAW FRACTURE [None]
  - TRISMUS [None]
  - NAUSEA [None]
  - FEMUR FRACTURE [None]
  - VOMITING [None]
  - OSTEONECROSIS OF JAW [None]
  - GINGIVAL DISORDER [None]
  - HIP FRACTURE [None]
  - ADVERSE DRUG REACTION [None]
  - DENTAL CARIES [None]
  - PERIODONTAL DISEASE [None]
  - OSTEONECROSIS [None]
  - ORAL INFECTION [None]
  - TIBIA FRACTURE [None]
  - GINGIVAL BLEEDING [None]
  - EDENTULOUS [None]
  - EXOSTOSIS [None]
  - IMPAIRED HEALING [None]
  - DIARRHOEA [None]
